FAERS Safety Report 23425723 (Version 4)
Quarter: 2024Q1

REPORT INFORMATION
  Report Type: Spontaneous
  Country: JP (occurrence: JP)
  Receive Date: 20240122
  Receipt Date: 20240227
  Transmission Date: 20240409
  Serious: Yes (Death, Hospitalization, Other)
  Sender: FDA-Public Use
  Company Number: JP-GSKNCCC-Case-01874483_AE-78390

PATIENT

DRUGS (7)
  1. BENLYSTA [Suspect]
     Active Substance: BELIMUMAB
     Indication: Systemic lupus erythematosus
     Dosage: 200 MG, WE
     Route: 058
     Dates: start: 20221025, end: 20221129
  2. BENLYSTA [Suspect]
     Active Substance: BELIMUMAB
     Indication: Immunosuppressant drug therapy
     Dosage: 200 MG
     Route: 058
     Dates: start: 20221205, end: 20231205
  3. DAYVIGO [Concomitant]
     Active Substance: LEMBOREXANT
     Indication: Dementia
     Dosage: 5 MG, QD
     Dates: start: 20231020
  4. PREDNISOLONE [Concomitant]
     Active Substance: PREDNISOLONE
     Dosage: UNK
  5. PREDNISOLONE [Concomitant]
     Active Substance: PREDNISOLONE
     Dosage: 1.5 MG, QD
  6. RISPERDAL [Concomitant]
     Active Substance: RISPERIDONE
     Indication: Dementia
     Dosage: 1 MG, QD
  7. TRAZODONE [Concomitant]
     Active Substance: TRAZODONE HYDROCHLORIDE
     Dosage: 25 MG, QD

REACTIONS (11)
  - COVID-19 [Fatal]
  - Influenza [Fatal]
  - Thrombosis [Fatal]
  - Multiple organ dysfunction syndrome [Fatal]
  - Antiphospholipid syndrome [Fatal]
  - Condition aggravated [Fatal]
  - General physical health deterioration [Fatal]
  - Cognitive disorder [Not Recovered/Not Resolved]
  - Renal failure [Fatal]
  - Hyponatraemia [Unknown]
  - Pyrexia [Unknown]

NARRATIVE: CASE EVENT DATE: 20230101
